FAERS Safety Report 5652884-7 (Version None)
Quarter: 2008Q1

REPORT INFORMATION
  Report Type: 
  Country: None (occurrence: None)
  Receive Date: 20080306
  Receipt Date: 20080220
  Transmission Date: 20080703
  Serious: Yes (Other)
  Sender: FDA-Public Use
  Company Number: US-BAYER-200810771BCC

PATIENT
  Age: 56 Year
  Sex: Female
  Weight: 68 kg

DRUGS (12)
  1. PHILLIPS MILK OF MAGNESIA ORIGINAL LIQUID [Suspect]
     Indication: CONSTIPATION
     Route: 048
     Dates: start: 19480101
  2. ATENOLOL [Concomitant]
  3. UNKNOWN BLOOD PRESSURE MEDICATION [Concomitant]
  4. NEXIUM [Concomitant]
  5. WAL-MART WOMAN'S MULTIVITAMIN [Concomitant]
  6. DARVOCET [Concomitant]
  7. TYLENOL (CAPLET) [Concomitant]
  8. CALCIUM SUPPLEMENT [Concomitant]
  9. GLUCOSAMINE [Concomitant]
  10. COUMADIN [Concomitant]
     Dates: start: 20050101
  11. ASPIRIN [Concomitant]
     Route: 048
     Dates: start: 19930101, end: 20050101
  12. ASPIRIN [Concomitant]
     Dates: start: 20030101, end: 20050101

REACTIONS (3)
  - COLONIC ATONY [None]
  - DIVERTICULITIS [None]
  - URINARY TRACT INFECTION [None]
